FAERS Safety Report 9300668 (Version 2)
Quarter: 2013Q2

REPORT INFORMATION
  Report Type: Spontaneous
  Country: IE (occurrence: IE)
  Receive Date: 20130521
  Receipt Date: 20130524
  Transmission Date: 20140414
  Serious: No
  Sender: FDA-Public Use
  Company Number: IE-AMGEN-IRLSP2013035473

PATIENT
  Age: 67 Year
  Sex: Female

DRUGS (2)
  1. NEULASTA [Suspect]
     Indication: BREAST CANCER
     Dosage: 6MG/0.6ML EVERY 3 WEEKS POST CHEMO
     Route: 058
     Dates: start: 20130425
  2. CHEMOTHERAPEUTICS [Concomitant]
     Dosage: UNK

REACTIONS (3)
  - Body temperature increased [Recovered/Resolved]
  - Adverse drug reaction [Recovered/Resolved]
  - Diarrhoea [Recovered/Resolved]
